FAERS Safety Report 9025466 (Version 1)
Quarter: 2013Q1

REPORT INFORMATION
  Report Type: Spontaneous
  Country: JP (occurrence: JP)
  Receive Date: 20130123
  Receipt Date: 20130123
  Transmission Date: 20140127
  Serious: Yes (Other)
  Sender: FDA-Public Use
  Company Number: JP-B.I. PHARMACEUTICALS,INC./RIDGEFIELD-2013-BI-00975YA

PATIENT
  Age: 78 Year
  Sex: Male

DRUGS (4)
  1. HARNAL [Suspect]
     Indication: BENIGN PROSTATIC HYPERPLASIA
     Dosage: 0.2 MG
     Route: 048
     Dates: start: 20121225, end: 20121230
  2. HARNAL [Suspect]
     Indication: DYSURIA
     Dosage: 0.1 MG
     Route: 048
     Dates: start: 20121220, end: 20121224
  3. JANUVIA (SITAGLIPTIN PHOSPHATE) [Concomitant]
     Dates: start: 20100701
  4. GLIMEPIRIDE (GLIMEPIRIDE) [Concomitant]
     Dates: start: 20110304

REACTIONS (1)
  - Loss of consciousness [Recovered/Resolved]
